FAERS Safety Report 5147624-4 (Version None)
Quarter: 2006Q4

REPORT INFORMATION
  Report Type: 
  Country: None (occurrence: None)
  Receive Date: 20061110
  Receipt Date: 20061108
  Transmission Date: 20070319
  Serious: Yes (Death, Other)
  Sender: FDA-Public Use
  Company Number: JP-JNJFOC-20061002495

PATIENT
  Age: 73 Year
  Sex: Male

DRUGS (2)
  1. LEUSTATIN [Suspect]
     Indication: MANTLE CELL LYMPHOMA
  2. NOVANTRONE [Suspect]
     Indication: MANTLE CELL LYMPHOMA

REACTIONS (6)
  - ANAEMIA [None]
  - LYMPHOCYTE COUNT DECREASED [None]
  - MANTLE CELL LYMPHOMA [None]
  - MYELODYSPLASTIC SYNDROME [None]
  - NEUTROPHIL COUNT DECREASED [None]
  - PLATELET COUNT DECREASED [None]
